FAERS Safety Report 5160462-1 (Version None)
Quarter: 2006Q4

REPORT INFORMATION
  Report Type: 
  Country: None (occurrence: None)
  Receive Date: 20061121
  Receipt Date: 20061114
  Transmission Date: 20070319
  Serious: Yes (Hospitalization, Disabling)
  Sender: FDA-Public Use
  Company Number: TAP2006Q01875

PATIENT
  Age: 46 Year
  Sex: Female
  Weight: 78.6 kg

DRUGS (2)
  1. LUPRON DEPOT [Suspect]
     Indication: ENDOMETRIOSIS
     Dosage: 37.5 MG, 1 IN 1 M, INTRAMUSCULAR
     Route: 030
     Dates: start: 19940401, end: 19940701
  2. MODURETIK (MODURETIC) [Concomitant]

REACTIONS (5)
  - FALL [None]
  - INTERVERTEBRAL DISC DEGENERATION [None]
  - OSTEOPOROSIS [None]
  - SPINAL COLUMN STENOSIS [None]
  - THORACIC VERTEBRAL FRACTURE [None]
